FAERS Safety Report 9558003 (Version 1)
Quarter: 2013Q3

REPORT INFORMATION
  Report Type: Spontaneous
  Country: US (occurrence: None)
  Receive Date: 20130724
  Receipt Date: 20130724
  Transmission Date: 20140515
  Serious: Yes (Other)
  Sender: FDA-Public Use
  Company Number: PHEH2013US007311

PATIENT
  Sex: Female
  Weight: 90.7 kg

DRUGS (2)
  1. GILENYA [Suspect]
     Indication: MULTIPLE SCLEROSIS
     Route: 048
     Dates: start: 20120105, end: 2012
  2. BOTOX (BOTULINUM TOXIN TYPE A) [Concomitant]

REACTIONS (2)
  - Weight increased [None]
  - Urinary tract infection [None]
